FAERS Safety Report 12217500 (Version 1)
Quarter: 2016Q1

REPORT INFORMATION
  Report Type: Spontaneous
  Country: US (occurrence: None)
  Receive Date: 20160328
  Receipt Date: 20160328
  Transmission Date: 20160526
  Serious: Yes (Hospitalization)
  Sender: FDA-Public Use
  Company Number: None

PATIENT
  Age: 85 Year
  Sex: Female

DRUGS (1)
  1. PROHANCE [Suspect]
     Active Substance: GADOTERIDOL
     Route: 040
     Dates: start: 20160324, end: 20160324

REACTIONS (7)
  - Tachycardia [None]
  - Petechiae [None]
  - Hypertension [None]
  - Erythema [None]
  - Back pain [None]
  - Muscle rigidity [None]
  - Pain in extremity [None]

NARRATIVE: CASE EVENT DATE: 20160324
